FAERS Safety Report 9191476 (Version 4)
Quarter: 2015Q1

REPORT INFORMATION
  Report Type: Spontaneous
  Country: DK (occurrence: DK)
  Receive Date: 20130326
  Receipt Date: 20150302
  Transmission Date: 20150721
  Serious: Yes (Death, Life-Threatening, Hospitalization, Other)
  Sender: FDA-Public Use
  Company Number: DK-B.I. PHARMACEUTICALS,INC./RIDGEFIELD-2013-SW-00168DB

PATIENT
  Age: 74 Year
  Sex: Male

DRUGS (6)
  1. PANTOPRAZOLE [Concomitant]
     Active Substance: PANTOPRAZOLE SODIUM
     Indication: PRODUCT USED FOR UNKNOWN INDICATION
  2. UNIKALK [Concomitant]
     Indication: PRODUCT USED FOR UNKNOWN INDICATION
  3. PRADAXA [Suspect]
     Active Substance: DABIGATRAN ETEXILATE MESYLATE
     Indication: ATRIAL FIBRILLATION
     Dosage: 300 MG
     Route: 065
     Dates: end: 201211
  4. PRADAXA [Suspect]
     Active Substance: DABIGATRAN ETEXILATE MESYLATE
     Dosage: 300 MG
     Route: 065
     Dates: start: 20121119, end: 20121126
  5. MAGNYL [Concomitant]
     Active Substance: ASPIRIN
     Indication: PRODUCT USED FOR UNKNOWN INDICATION
  6. ALENDRONIC ACID [Concomitant]
     Active Substance: ALENDRONIC ACID
     Indication: PRODUCT USED FOR UNKNOWN INDICATION

REACTIONS (27)
  - Blood creatinine increased [Unknown]
  - Hepatic enzyme increased [Unknown]
  - Cardiovascular disorder [Unknown]
  - Pyrexia [Unknown]
  - Multi-organ failure [Unknown]
  - Cerebral infarction [Recovered/Resolved]
  - Anaemia [Unknown]
  - Jaundice [Recovered/Resolved]
  - Loss of consciousness [Unknown]
  - Vascular graft [Unknown]
  - Dyspnoea [Unknown]
  - Cardiac arrest [Recovered/Resolved]
  - Anuria [Unknown]
  - Respiratory arrest [Recovered/Resolved]
  - Cardiac failure [Unknown]
  - Ventricular extrasystoles [Unknown]
  - Hepatic encephalopathy [Recovered/Resolved]
  - Toxicity to various agents [Unknown]
  - Aspiration [Fatal]
  - Rectal haemorrhage [Fatal]
  - Heart valve replacement [Unknown]
  - International normalised ratio increased [Unknown]
  - Pulmonary oedema [Unknown]
  - Haemothorax [Unknown]
  - Hyporesponsive to stimuli [Unknown]
  - Blood pressure decreased [Recovered/Resolved]
  - Haematemesis [Unknown]

NARRATIVE: CASE EVENT DATE: 20121113
